FAERS Safety Report 6164607-6 (Version None)
Quarter: 2009Q2

REPORT INFORMATION
  Report Type: 
  Country: None (occurrence: None)
  Receive Date: 20090423
  Receipt Date: 20090413
  Transmission Date: 20091009
  Serious: Yes (Other)
  Sender: FDA-Public Use
  Company Number: US-JNJFOC-20060906239

PATIENT
  Sex: Female

DRUGS (4)
  1. RISPERDAL [Suspect]
     Indication: MAJOR DEPRESSION
  2. RISPERDAL [Suspect]
     Indication: DEPRESSION
  3. NEURONTIN [Interacting]
     Indication: DRUG USE FOR UNKNOWN INDICATION
     Route: 065
  4. PAXIL [Interacting]
     Indication: DRUG USE FOR UNKNOWN INDICATION
     Route: 065

REACTIONS (4)
  - DIABETES MELLITUS [None]
  - DRUG INTERACTION [None]
  - EXTRAPYRAMIDAL DISORDER [None]
  - SLEEP DISORDER [None]
